FAERS Safety Report 8012689-9 (Version None)
Quarter: 2011Q4

REPORT INFORMATION
  Report Type: 
  Country: None (occurrence: None)
  Receive Date: 20111223
  Receipt Date: 20111223
  Transmission Date: 20120403
  Serious: Yes (Hospitalization)
  Sender: FDA-Public Use
  Company Number: None

PATIENT
  Sex: Female
  Weight: 76.6579 kg

DRUGS (1)
  1. LUCENTIS [Suspect]
     Dosage: MONTHLY: INTRAVITREAL
     Route: 011
     Dates: start: 20100814, end: 20111108

REACTIONS (2)
  - PROCTALGIA [None]
  - CHEST PAIN [None]
